FAERS Safety Report 8026384-3 (Version None)
Quarter: 2012Q1

REPORT INFORMATION
  Report Type: 
  Country: None (occurrence: None)
  Receive Date: 20120105
  Receipt Date: 20111229
  Transmission Date: 20120608
  Serious: Yes (Life-Threatening, Hospitalization)
  Sender: FDA-Public Use
  Company Number: US-ROCHE-1001658

PATIENT
  Sex: Female

DRUGS (13)
  1. LIPITOR [Concomitant]
     Indication: BLOOD CHOLESTEROL INCREASED
     Route: 048
     Dates: start: 20000101
  2. BLINDED RANIBIZUMAB [Suspect]
     Indication: AGE-RELATED MACULAR DEGENERATION
     Route: 050
     Dates: start: 20100406, end: 20110823
  3. ASPIRIN [Concomitant]
     Indication: THROMBOSIS PROPHYLAXIS
     Route: 048
     Dates: start: 20000101
  4. CALCIUM ACETATE [Concomitant]
     Indication: BONE LOSS
     Route: 048
     Dates: start: 20000101
  5. SYNTHROID [Concomitant]
     Indication: BASEDOW'S DISEASE
     Route: 048
     Dates: start: 19660101
  6. MULTI-VITAMIN [Concomitant]
     Route: 048
     Dates: start: 20000101
  7. GLIPIZIDE [Concomitant]
     Indication: DIABETES MELLITUS
     Route: 048
     Dates: start: 20070101
  8. METOPROLOL [Concomitant]
     Indication: HYPERTENSION
     Route: 048
     Dates: start: 19850101
  9. EFFEXOR [Concomitant]
     Indication: DEPRESSION
     Route: 048
     Dates: start: 20000101
  10. LUTEIN [Concomitant]
     Route: 048
     Dates: start: 20000101
  11. FOLIC ACID [Concomitant]
     Route: 048
     Dates: start: 20000101
  12. BENICAR [Concomitant]
     Indication: HYPERTENSION
     Route: 048
     Dates: start: 19850101
  13. ACIPHEX [Concomitant]
     Indication: GASTROOESOPHAGEAL REFLUX DISEASE
     Route: 048
     Dates: start: 20050101

REACTIONS (1)
  - VENTRICULAR TACHYCARDIA [None]
